FAERS Safety Report 5584590-1 (Version None)
Quarter: 2008Q1

REPORT INFORMATION
  Report Type: 
  Country: None (occurrence: None)
  Receive Date: 20080108
  Receipt Date: 20070814
  Transmission Date: 20080703
  Serious: Yes (Hospitalization)
  Sender: FDA-Public Use
  Company Number: GB-RANBAXY-2007RR-09755

PATIENT

DRUGS (1)
  1. ACETAMINOPHEN [Suspect]
     Dosage: UNK

REACTIONS (2)
  - BLOOD POTASSIUM DECREASED [None]
  - OVERDOSE [None]
